FAERS Safety Report 9846765 (Version 1)
Quarter: 2014Q1

REPORT INFORMATION
  Report Type: Spontaneous
  Country: IT (occurrence: IT)
  Receive Date: 20140127
  Receipt Date: 20140127
  Transmission Date: 20141002
  Serious: Yes (Life-Threatening, Hospitalization)
  Sender: FDA-Public Use
  Company Number: IT-ASTRAZENECA-2014SE05415

PATIENT
  Age: 29032 Day
  Sex: Male

DRUGS (13)
  1. BRILIQUE [Suspect]
     Indication: ACUTE MYOCARDIAL INFARCTION
     Route: 048
     Dates: start: 20131126, end: 20131218
  2. BRILIQUE [Suspect]
     Indication: ACUTE MYOCARDIAL INFARCTION
     Route: 048
     Dates: start: 20131219, end: 20131224
  3. CARDIOASPIRIN [Suspect]
     Indication: CEREBROVASCULAR ACCIDENT PROPHYLAXIS
     Route: 048
     Dates: end: 20131218
  4. CARDIOASPIRIN [Suspect]
     Indication: CEREBROVASCULAR ACCIDENT PROPHYLAXIS
     Route: 048
     Dates: start: 20131219
  5. CARDIOASPIRIN [Suspect]
     Indication: CEREBROVASCULAR ACCIDENT PROPHYLAXIS
     Route: 048
     Dates: start: 20131221
  6. ACETYLCYSTEINE [Concomitant]
  7. TAMSULOSIN [Concomitant]
  8. ALDACTONE [Concomitant]
  9. CARDICOR [Concomitant]
  10. LASIX [Concomitant]
  11. PROCORALAN [Concomitant]
  12. TORVAST [Concomitant]
  13. TRINIPLAS [Concomitant]

REACTIONS (3)
  - Anaemia [Recovering/Resolving]
  - Shock haemorrhagic [Recovering/Resolving]
  - Gastric haemorrhage [Recovering/Resolving]
